FAERS Safety Report 10152120 (Version 1)
Quarter: 2014Q2

REPORT INFORMATION
  Report Type: Spontaneous
  Country: US (occurrence: US)
  Receive Date: 20140505
  Receipt Date: 20140505
  Transmission Date: 20141212
  Serious: Yes (Death)
  Sender: FDA-Public Use
  Company Number: US-ASTELLAS-2014US004819

PATIENT
  Sex: Female

DRUGS (3)
  1. TARCEVA [Suspect]
     Indication: LUNG NEOPLASM MALIGNANT
     Route: 048
     Dates: start: 20130525
  2. TARCEVA [Suspect]
     Route: 048
     Dates: start: 20130604, end: 201311
  3. TARCEVA [Suspect]
     Route: 048
     Dates: start: 20130604

REACTIONS (4)
  - Death [Fatal]
  - Tremor [Not Recovered/Not Resolved]
  - Tremor [Not Recovered/Not Resolved]
  - Ocular icterus [Unknown]
